FAERS Safety Report 22142836 (Version 1)
Quarter: 2023Q1

REPORT INFORMATION
  Report Type: Spontaneous
  Country: US (occurrence: US)
  Receive Date: 20230327
  Receipt Date: 20230327
  Transmission Date: 20230418
  Serious: Yes (Death, Other)
  Sender: FDA-Public Use
  Company Number: US-FreseniusKabi-FK202303819

PATIENT
  Age: 47 Year
  Sex: Female

DRUGS (1)
  1. PACLITAXEL [Suspect]
     Active Substance: PACLITAXEL
     Indication: Triple negative breast cancer

REACTIONS (3)
  - Kounis syndrome [Fatal]
  - Kounis syndrome [Fatal]
  - Ventricular fibrillation [Unknown]
